FAERS Safety Report 7519077-X (Version None)
Quarter: 2011Q2

REPORT INFORMATION
  Report Type: 
  Country: None (occurrence: None)
  Receive Date: 20110602
  Receipt Date: 20110527
  Transmission Date: 20111010
  Serious: Yes (Other)
  Sender: FDA-Public Use
  Company Number: RU-US-EMD SERONO, INC.-7012480

PATIENT
  Sex: Female
  Weight: 75 kg

DRUGS (2)
  1. TRENTAL [Concomitant]
     Dates: start: 20091101, end: 20100501
  2. REBIF [Suspect]
     Indication: MULTIPLE SCLEROSIS
     Route: 058
     Dates: start: 20090601, end: 20100716

REACTIONS (2)
  - DRUG EXPOSURE DURING PREGNANCY [None]
  - PREMATURE DELIVERY [None]
